FAERS Safety Report 12877618 (Version 2)
Quarter: 2016Q4

REPORT INFORMATION
  Report Type: Spontaneous
  Country: US (occurrence: US)
  Receive Date: 20161024
  Receipt Date: 20161104
  Transmission Date: 20170207
  Serious: No
  Sender: FDA-Public Use
  Company Number: US-TEVA-700130ACC

PATIENT
  Age: 32 Year
  Sex: Female
  Weight: 58.57 kg

DRUGS (1)
  1. PARAGARD T 380A [Suspect]
     Active Substance: COPPER
     Indication: CONTRACEPTION
     Dates: start: 20060123, end: 20160926

REACTIONS (7)
  - Emotional disorder [Recovered/Resolved]
  - Premenstrual syndrome [Recovered/Resolved]
  - Fatigue [Recovered/Resolved]
  - Menstruation delayed [Not Recovered/Not Resolved]
  - Device breakage [Not Recovered/Not Resolved]
  - Embedded device [Not Recovered/Not Resolved]
  - Irritability [Recovered/Resolved]

NARRATIVE: CASE EVENT DATE: 20161002
